FAERS Safety Report 12750626 (Version 1)
Quarter: 2016Q3

REPORT INFORMATION
  Report Type: Spontaneous
  Country: US (occurrence: US)
  Receive Date: 20160915
  Receipt Date: 20160915
  Transmission Date: 20161109
  Serious: No
  Sender: FDA-Public Use
  Company Number: US-ASTELLAS-2016US000687

PATIENT
  Age: 67 Year
  Sex: Male

DRUGS (1)
  1. XTANDI [Suspect]
     Active Substance: ENZALUTAMIDE
     Indication: PROSTATE CANCER
     Dosage: 120 MG (03 CAPSULES OF 40 MG), ONCE DAILY
     Route: 065
     Dates: start: 201507

REACTIONS (4)
  - Fatigue [Unknown]
  - Arthralgia [Unknown]
  - Underdose [Unknown]
  - Balance disorder [Unknown]

NARRATIVE: CASE EVENT DATE: 201508
